FAERS Safety Report 17501503 (Version 1)
Quarter: 2020Q1

REPORT INFORMATION
  Report Type: Spontaneous
  Country: US (occurrence: US)
  Receive Date: 20200305
  Receipt Date: 20200305
  Transmission Date: 20200409
  Serious: No
  Sender: FDA-Public Use
  Company Number: US-ASTRAZENECA-2020SE20520

PATIENT
  Age: 23425 Day
  Sex: Female
  Weight: 88.5 kg

DRUGS (2)
  1. INSULIN PUMP [Concomitant]
     Active Substance: INSULIN NOS
  2. SYMLIN [Suspect]
     Active Substance: PRAMLINTIDE ACETATE
     Indication: TYPE 1 DIABETES MELLITUS
     Dosage: 60 MCG WITH BREAKFAST AND LUNCH AND 90 MCG WITH DINNER, THREE TIMES A DAY
     Route: 058
     Dates: start: 2012

REACTIONS (5)
  - Intentional product misuse [Unknown]
  - Blood glucose increased [Recovering/Resolving]
  - Incorrect dose administered by device [Unknown]
  - Therapeutic product effect decreased [Unknown]
  - Device issue [Unknown]

NARRATIVE: CASE EVENT DATE: 20200204
